FAERS Safety Report 7138469-4 (Version None)
Quarter: 2010Q4

REPORT INFORMATION
  Report Type: 
  Country: None (occurrence: None)
  Receive Date: 20101206
  Receipt Date: 20101202
  Transmission Date: 20110411
  Serious: Yes (Other)
  Sender: FDA-Public Use
  Company Number: PHHY2010BR34944

PATIENT
  Age: 48 Year
  Sex: Female
  Weight: 86 kg

DRUGS (2)
  1. ZELMAC [Suspect]
     Indication: IRRITABLE BOWEL SYNDROME
     Dosage: 1 DF, BID
     Route: 048
  2. ABLOK PLUS [Concomitant]
     Indication: HYPERTENSION
     Dosage: 1 TABLET PER DAY
     Route: 048

REACTIONS (6)
  - ABDOMINAL PAIN [None]
  - CONSTIPATION [None]
  - DIABETES MELLITUS [None]
  - FLATULENCE [None]
  - HAEMORRHAGE [None]
  - PROCTALGIA [None]
